FAERS Safety Report 14287005 (Version 1)
Quarter: 2017Q4

REPORT INFORMATION
  Report Type: Spontaneous
  Country: US (occurrence: US)
  Receive Date: 20171214
  Receipt Date: 20171214
  Transmission Date: 20180321
  Serious: No
  Sender: FDA-Public Use
  Company Number: US-ELI_LILLY_AND_COMPANY-US201712003767

PATIENT
  Sex: Female

DRUGS (16)
  1. PRILOSEC [Concomitant]
     Active Substance: OMEPRAZOLE MAGNESIUM
     Dosage: 20 MG, EACH MORNING
     Route: 048
  2. DYAZIDE [Concomitant]
     Active Substance: HYDROCHLOROTHIAZIDE\TRIAMTERENE
     Dosage: UNK, DAILY
     Route: 048
  3. REFRESH LIQUIGEL [Concomitant]
     Active Substance: CARBOXYMETHYLCELLULOSE SODIUM
     Route: 047
  4. TEMOVATE [Concomitant]
     Active Substance: CLOBETASOL PROPIONATE
  5. CHOLECALCIFEROL [Concomitant]
     Active Substance: CHOLECALCIFEROL
  6. COLACE [Concomitant]
     Active Substance: DOCUSATE SODIUM
     Dosage: UNK, BID
     Route: 048
  7. NITROSTAT [Concomitant]
     Active Substance: NITROGLYCERIN
     Indication: CHEST PAIN
     Dosage: 0.4 MG, PRN
     Route: 060
  8. LACTOBACILLUS ACIDOPHILUS [Concomitant]
     Active Substance: LACTOBACILLUS ACIDOPHILUS
     Route: 048
  9. XALATAN [Concomitant]
     Active Substance: LATANOPROST
     Route: 047
  10. LYRICA [Concomitant]
     Active Substance: PREGABALIN
     Dosage: 75 MG, TID
     Route: 048
  11. CYMBALTA [Suspect]
     Active Substance: DULOXETINE HYDROCHLORIDE
     Indication: PRODUCT USED FOR UNKNOWN INDICATION
     Dosage: UNK, UNKNOWN
     Route: 065
     Dates: start: 20120424
  12. TYLENOL [Concomitant]
     Active Substance: ACETAMINOPHEN
     Indication: PAIN
     Dosage: 500 MG, EVERY 6 HRS
     Route: 048
  13. SENOKOT [Concomitant]
     Active Substance: SENNOSIDES
     Dosage: 8.6 MG, EACH EVENING
     Route: 048
  14. SALSALATE. [Concomitant]
     Active Substance: SALSALATE
     Dosage: UNK UNK, UNKNOWN
     Route: 065
     Dates: start: 20121003
  15. VITAMIN B12 [Concomitant]
     Active Substance: CYANOCOBALAMIN
     Dosage: 4 DF, DAILY
     Route: 048
  16. COUMADIN [Concomitant]
     Active Substance: WARFARIN SODIUM
     Dosage: 2.5 MG, OTHER
     Route: 048

REACTIONS (2)
  - Dyspnoea [Unknown]
  - Anxiety [Unknown]
